FAERS Safety Report 12913243 (Version 1)
Quarter: 2016Q4

REPORT INFORMATION
  Report Type: Spontaneous
  Country: JP (occurrence: JP)
  Receive Date: 20161104
  Receipt Date: 20161104
  Transmission Date: 20170207
  Serious: Yes (Other)
  Sender: FDA-Public Use
  Company Number: JP-HQ SPECIALTY-JP-2016INT000932

PATIENT
  Age: 61 Year
  Sex: Female

DRUGS (2)
  1. PACLITAXEL. [Suspect]
     Active Substance: PACLITAXEL
     Indication: BREAST CANCER RECURRENT
     Dosage: 130 MG/BODY, ON DAY 1, 8 AND 15 EVERY 4 WEEKS
     Route: 042
  2. BEVACIZUMAB [Suspect]
     Active Substance: BEVACIZUMAB
     Indication: BREAST CANCER RECURRENT
     Dosage: 600 MG/BODY, ON DAY 1 EVERY 2 WEEKS

REACTIONS (10)
  - Wheezing [Recovered/Resolved]
  - Chest X-ray abnormal [Recovered/Resolved]
  - Alanine aminotransferase increased [Unknown]
  - Acute lung injury [Recovered/Resolved]
  - Dyspnoea [Recovered/Resolved]
  - Cell marker increased [Unknown]
  - Lung infiltration [Recovered/Resolved]
  - Anaemia [Unknown]
  - Rales [Recovered/Resolved]
  - Aspartate aminotransferase increased [Unknown]
